FAERS Safety Report 12697500 (Version 1)
Quarter: 2016Q3

REPORT INFORMATION
  Report Type: Spontaneous
  Country: US (occurrence: None)
  Receive Date: 20160829
  Receipt Date: 20160829
  Transmission Date: 20161109
  Serious: Yes (Life-Threatening, Hospitalization)
  Sender: FDA-Public Use
  Company Number: None

PATIENT
  Age: 54 Year
  Sex: Male
  Weight: 86.18 kg

DRUGS (1)
  1. ALKA-SELTZER XTRA STRENGTH [Suspect]
     Active Substance: ANHYDROUS CITRIC ACID\ASPIRIN\SODIUM BICARBONATE
     Indication: DYSPEPSIA
     Dosage: 2 TABLET (S) TWO TIMES TAKEN BY MOUTH
     Route: 048
     Dates: start: 20160513, end: 20160519

REACTIONS (10)
  - Internal haemorrhage [None]
  - Asthenia [None]
  - Heart rate increased [None]
  - Gastrointestinal polyp haemorrhage [None]
  - Feeling abnormal [None]
  - Faeces discoloured [None]
  - Diarrhoea [None]
  - Vomiting [None]
  - Gait disturbance [None]
  - Gastric disorder [None]

NARRATIVE: CASE EVENT DATE: 20160514
